FAERS Safety Report 23837488 (Version 1)
Quarter: 2024Q2

REPORT INFORMATION
  Report Type: Spontaneous
  Country: IT (occurrence: IT)
  Receive Date: 20240509
  Receipt Date: 20240509
  Transmission Date: 20240716
  Serious: Yes (Hospitalization)
  Sender: FDA-Public Use
  Company Number: None

PATIENT
  Age: 73 Year
  Sex: Female
  Weight: 80 kg

DRUGS (6)
  1. LENALIDOMIDE [Suspect]
     Active Substance: LENALIDOMIDE
     Indication: Plasma cell myeloma
     Dosage: AT THE TIME OF THE ADVERSE REACTION, ONGOING LENALIDOMIDE 10 MG DIE FOR 21 CONSECUTIVE DAYS FROM ...
     Route: 048
     Dates: start: 20220617, end: 20230204
  2. ASPIRIN [Concomitant]
     Active Substance: ASPIRIN
     Indication: Product used for unknown indication
     Dosage: STARTING IN JULY 2022 AT A DOSAGE OF 100 MG/DAY?SUSPENDED WITH THE ADVERSE REACTION DUE TO INITIA...
     Route: 048
     Dates: start: 202207, end: 20230204
  3. DARATUMUMAB [Concomitant]
     Active Substance: DARATUMUMAB
     Indication: Plasma cell myeloma
     Dosage: 1800 MG EVERY 28 DAYS?CONTINUED AFTER DISCONTINUATION OF LENALIDOMIDE
     Route: 058
  4. SIMVASTATIN [Concomitant]
     Active Substance: SIMVASTATIN
     Indication: Product used for unknown indication
     Dosage: START DATE UNKNOWN, ONGOING AT TIME OF ADVERSE REACTION AND CONTINUED 20 MG/DAY
     Route: 048
  5. DEXAMETHASONE [Concomitant]
     Active Substance: DEXAMETHASONE
     Indication: Plasma cell myeloma
     Dosage: 40 MG/WEEK (20 MG FOR 2 DAYS EACH WEEK) INTRAVENOUSLY OR ORALLY CONTINUED EVEN AFTER DISCONTINUAT...
     Route: 042
  6. QUETIAPINE [Concomitant]
     Active Substance: QUETIAPINE
     Indication: Product used for unknown indication
     Dosage: START DATE UNKNOWN, ONGOING AT TIME OF ADVERSE REACTION AND CONTINUED 50 MG/DAY
     Route: 048

REACTIONS (4)
  - Pulmonary embolism [Recovering/Resolving]
  - Tachycardia [Recovering/Resolving]
  - Hypotension [Recovering/Resolving]
  - Dyspnoea [Recovering/Resolving]

NARRATIVE: CASE EVENT DATE: 20230204
